FAERS Safety Report 6999860-X (Version None)
Quarter: 2010Q3

REPORT INFORMATION
  Report Type: 
  Country: None (occurrence: None)
  Receive Date: 20100920
  Receipt Date: 20070924
  Transmission Date: 20110219
  Serious: Yes (Other)
  Sender: FDA-Public Use
  Company Number: US-ASTRAZENECA-2006UW22070

PATIENT
  Sex: Female
  Weight: 116.1 kg

DRUGS (21)
  1. SEROQUEL [Suspect]
     Dosage: 25 MG TO 100 MG
     Route: 048
     Dates: start: 20011110
  2. SEROQUEL [Suspect]
     Route: 048
  3. DEPAKOTE [Concomitant]
     Dates: start: 20020611
  4. GLUCOPHAGE XR [Concomitant]
     Dates: start: 20011110
  5. MECLIZINE [Concomitant]
     Dates: start: 20011110
  6. GLUCOTROL XR [Concomitant]
     Dosage: 5 MG TO 10 MG
     Dates: start: 20011110
  7. LIPITOR [Concomitant]
     Dates: start: 20011204
  8. AVANDIA [Concomitant]
     Dates: start: 20011204
  9. DILANTIN [Concomitant]
     Dosage: 100 MG TO 300 MG , EVERY MORNING
     Dates: start: 20011213
  10. DIFLUCAN [Concomitant]
     Dates: start: 20011219
  11. ZOLOFT [Concomitant]
     Dates: start: 20020102
  12. VERAPAMIL [Concomitant]
     Dates: start: 20020109
  13. ACETAMINOPHEN AND HYDROCODONE BITARTRATE [Concomitant]
     Dosage: 5-500 MG
     Dates: start: 20020626
  14. NEURONTIN [Concomitant]
     Dates: start: 20021003
  15. NAPROXEN [Concomitant]
     Dates: start: 20021102
  16. LANTUS [Concomitant]
     Dosage: 10 UNITS , AT NIGHT
     Dates: start: 20030228
  17. TRAMADOL HYDROCHLORIDE [Concomitant]
     Dates: start: 20030624
  18. NOVOLIN 70/30 [Concomitant]
     Dosage: 70/30 , 25 UNITS IN MORNING, 20 UNIT IN NOON
     Dates: start: 20070920
  19. DEMEROL [Concomitant]
     Dosage: 25 MG TO 50 MG
     Dates: start: 20060621
  20. REGULAR INSULIN [Concomitant]
     Dosage: 25 UNITS IN MORNING AND 20 UNITS IN NOON
     Route: 058
     Dates: start: 20070626
  21. HUMALOG [Concomitant]
     Dosage: 100/ML
     Dates: start: 20031112

REACTIONS (1)
  - PANCREATITIS [None]
